FAERS Safety Report 20894816 (Version 1)
Quarter: 2022Q2

REPORT INFORMATION
  Report Type: Spontaneous
  Country: TR (occurrence: TR)
  Receive Date: 20220531
  Receipt Date: 20220531
  Transmission Date: 20220721
  Serious: Yes (Other)
  Sender: FDA-Public Use
  Company Number: TR-ORGANON-O2205TUR002335

PATIENT
  Age: 48 Year
  Sex: Male
  Weight: 89 kg

DRUGS (3)
  1. SINGULAIR [Suspect]
     Active Substance: MONTELUKAST SODIUM
     Indication: Rhinitis allergic
     Dosage: QD
     Route: 048
     Dates: start: 20220426, end: 20220509
  2. SINGULAIR [Suspect]
     Active Substance: MONTELUKAST SODIUM
     Indication: Calculus urinary
  3. SINGULAIR [Suspect]
     Active Substance: MONTELUKAST SODIUM
     Indication: Benign prostatic hyperplasia

REACTIONS (1)
  - Vasomotor rhinitis [Recovered/Resolved]

NARRATIVE: CASE EVENT DATE: 20220428
